FAERS Safety Report 10619314 (Version 2)
Quarter: 2014Q4

REPORT INFORMATION
  Report Type: Spontaneous
  Country: DE (occurrence: DE)
  Receive Date: 20141202
  Receipt Date: 20141202
  Transmission Date: 20150529
  Serious: Yes (Congenital Anomaly, Other)
  Sender: FDA-Public Use
  Company Number: DE-TEVA-442045GER

PATIENT
  Sex: Male

DRUGS (7)
  1. DOXYCYCLIN-RATIOPHARM 100 MG WEICHKAPSELN [Suspect]
     Active Substance: DOXYCYCLINE
     Indication: LAPAROSCOPY
  2. DOXYCYCLIN-RATIOPHARM 100 MG WEICHKAPSELN [Suspect]
     Active Substance: DOXYCYCLINE
     Indication: SALPINGITIS
     Route: 064
     Dates: start: 20131010, end: 20131020
  3. CEFUROXIME. [Suspect]
     Active Substance: CEFUROXIME
     Indication: SALPINGITIS
     Route: 064
     Dates: start: 20131010, end: 20131020
  4. CEFUROXIME. [Suspect]
     Active Substance: CEFUROXIME
     Indication: LAPAROSCOPY
  5. METRONIDAZOLE. [Suspect]
     Active Substance: METRONIDAZOLE
     Indication: SALPINGITIS
     Route: 062
     Dates: start: 20131010, end: 20131020
  6. PRESINOL [Concomitant]
     Active Substance: METHYLDOPA
     Indication: GESTATIONAL HYPERTENSION
     Route: 064
  7. METRONIDAZOLE. [Suspect]
     Active Substance: METRONIDAZOLE
     Indication: LAPAROSCOPY

REACTIONS (3)
  - Foetal exposure during pregnancy [Unknown]
  - Chondrodystrophy [Unknown]
  - Foetal growth restriction [Unknown]

NARRATIVE: CASE EVENT DATE: 2014
